FAERS Safety Report 20317353 (Version 1)
Quarter: 2022Q1

REPORT INFORMATION
  Report Type: Spontaneous
  Country: CA (occurrence: CA)
  Receive Date: 20220110
  Receipt Date: 20220110
  Transmission Date: 20220423
  Serious: Yes (Hospitalization)
  Sender: FDA-Public Use
  Company Number: None

PATIENT
  Age: 35 Year
  Sex: Female
  Weight: 72 kg

DRUGS (26)
  1. METHOTREXATE [Suspect]
     Active Substance: METHOTREXATE
     Indication: Abortion induced
     Dosage: 1 EVERY 2 DAYS
     Route: 030
  2. ACETAMINOPHEN [Concomitant]
     Active Substance: ACETAMINOPHEN
  3. ASPIRIN [Concomitant]
     Active Substance: ASPIRIN
  4. ASCORBIC ACID [Concomitant]
     Active Substance: ASCORBIC ACID
  5. BUPIVACAINE [Concomitant]
     Active Substance: BUPIVACAINE
     Dosage: SOLUTION BLOCK/INFILTRATION
  6. ELIQUIS [Concomitant]
     Active Substance: APIXABAN
  7. FAMOTIDINE [Concomitant]
     Active Substance: FAMOTIDINE
  8. FENTANYL [Concomitant]
     Active Substance: FENTANYL
  9. FERROUS SULFATE [Concomitant]
     Active Substance: FERROUS SULFATE
  10. FOLIC ACID [Concomitant]
     Active Substance: FOLIC ACID
  11. FRAGMIN [Concomitant]
     Active Substance: DALTEPARIN SODIUM
     Dosage: SOLUTION INTRAVENOUS
  12. FUROSEMIDE [Concomitant]
     Active Substance: FUROSEMIDE
  13. HEPARIN SODIUM [Concomitant]
     Active Substance: HEPARIN SODIUM
     Dosage: SOLUTION INTRAVENOUS
     Route: 042
  14. INSULIN NOS [Concomitant]
     Active Substance: INSULIN NOS
  15. LEUCOVORIN [Concomitant]
     Active Substance: LEUCOVORIN
  16. MEDROXYPROGESTERONE [Concomitant]
     Active Substance: MEDROXYPROGESTERONE
  17. METFORMIN [Concomitant]
     Active Substance: METFORMIN HYDROCHLORIDE
  18. MIRTAZAPINE [Concomitant]
     Active Substance: MIRTAZAPINE
  19. NOREPINEPHRINE [Concomitant]
     Active Substance: NOREPINEPHRINE
     Dosage: LIQUID INTRAVENOUS
  20. ONDANSETRON [Concomitant]
     Active Substance: ONDANSETRON
  21. ORGARAN [Concomitant]
     Active Substance: DANAPAROID SODIUM
     Dosage: SOLUTION INTRAVENOUS
  22. PANTOPRAZOLE [Concomitant]
     Active Substance: PANTOPRAZOLE
     Dosage: POWDER FOR?SOLUTION?INTRAVENOUS
  23. PIPERACILLIN AND TAZOBACTAM [Concomitant]
     Active Substance: PIPERACILLIN SODIUM\TAZOBACTAM SODIUM
  24. POLYETHYLENE GLYCOL [Concomitant]
     Active Substance: POLYETHYLENE GLYCOL
  25. POTASSIUM [Concomitant]
     Active Substance: POTASSIUM
     Dosage: SOLUTION INTRAVENOUS
  26. ZOPICLONE [Concomitant]
     Active Substance: ZOPICLONE

REACTIONS (4)
  - Thrombocytopenia [Recovered/Resolved]
  - Hepatic enzyme increased [Recovered/Resolved]
  - Leukopenia [Recovered/Resolved]
  - Off label use [Unknown]
